FAERS Safety Report 9457532 (Version 3)
Quarter: 2019Q4

REPORT INFORMATION
  Report Type: Spontaneous
  Country: US (occurrence: US)
  Receive Date: 20130814
  Receipt Date: 20191219
  Transmission Date: 20200122
  Serious: Yes (Hospitalization, Other)
  Sender: FDA-Public Use
  Company Number: US-UCBSA-094739

PATIENT
  Sex: Female
  Weight: 49.09 kg

DRUGS (2)
  1. 6-MP [Concomitant]
     Active Substance: MERCAPTOPURINE
     Indication: CROHN^S DISEASE
     Dosage: DOSE: 75 MG,5 DAYS PER WEEK, 2 DAYS PER WEEK , 1 AND HALF TABLET , 2 TABLETS
     Dates: start: 201306
  2. CIMZIA [Suspect]
     Active Substance: CERTOLIZUMAB PEGOL
     Indication: CROHN^S DISEASE
     Dosage: DOSE: 400 MG ONCE IN A MONTH,2 SYRINGES PER MONTH
     Dates: start: 20130123

REACTIONS (4)
  - Clostridium difficile infection [Recovered/Resolved]
  - Alopecia [Recovering/Resolving]
  - Fistula [Recovering/Resolving]
  - Anal abscess [Recovering/Resolving]

NARRATIVE: CASE EVENT DATE: 2013
